FAERS Safety Report 5273763-3 (Version None)
Quarter: 2007Q1

REPORT INFORMATION
  Report Type: 
  Country: None (occurrence: None)
  Receive Date: 20070321
  Receipt Date: 20070321
  Transmission Date: 20070707
  Serious: Yes (Other)
  Sender: FDA-Public Use
  Company Number: None

PATIENT
  Sex: Female
  Weight: 74.8435 kg

DRUGS (4)
  1. BUPROPION HCL [Suspect]
     Dosage: 300 MG QAM PO
     Route: 048
     Dates: start: 20070201, end: 20070302
  2. LEXAPRO [Concomitant]
  3. KLONOPIN [Concomitant]
  4. DOXEPIN HCL [Concomitant]

REACTIONS (5)
  - AKATHISIA [None]
  - ANXIETY [None]
  - MOOD ALTERED [None]
  - MOOD SWINGS [None]
  - PHARMACEUTICAL PRODUCT COMPLAINT [None]
